FAERS Safety Report 8303576-7 (Version None)
Quarter: 2012Q2

REPORT INFORMATION
  Report Type: 
  Country: None (occurrence: None)
  Receive Date: 20120416
  Receipt Date: 20120330
  Transmission Date: 20120825
  Serious: Yes (Hospitalization)
  Sender: FDA-Public Use
  Company Number: 2012031759

PATIENT
  Age: 32 Year
  Sex: Male

DRUGS (12)
  1. PRIVIGEN [Suspect]
     Indication: PLASMAPHERESIS
     Route: 042
     Dates: start: 20120203
  2. PRIVIGEN [Suspect]
     Indication: PLASMAPHERESIS
     Route: 042
     Dates: start: 20120208
  3. PRIVIGEN [Suspect]
     Indication: PLASMAPHERESIS
     Route: 042
     Dates: start: 20120131
  4. PRIVIGEN [Suspect]
     Indication: PLASMAPHERESIS
     Route: 042
     Dates: start: 20120204
  5. PRIVIGEN [Suspect]
     Indication: PLASMAPHERESIS
     Route: 042
     Dates: start: 20120209
  6. PRIVIGEN [Suspect]
     Indication: PLASMAPHERESIS
     Route: 042
     Dates: start: 20120130
  7. MYFORTIC [Suspect]
     Indication: SECONDARY IMMUNODEFICIENCY
     Dosage: 360 MG QID, 1440 MG/DAY ONGOING
     Route: 048
  8. PROGRAF [Suspect]
     Indication: SECONDARY IMMUNODEFICIENCY
     Dosage: T.T MGQD, 5.5 MG/DAY ONGOING
  9. IMMUNE GLOBULIN (HUMAN) [Suspect]
     Indication: PLASMAPHERESIS
     Route: 042
     Dates: start: 20120217
  10. IMMUNE GLOBULIN (HUMAN) [Suspect]
     Indication: PLASMAPHERESIS
     Route: 042
     Dates: start: 20120215
  11. IMMUNE GLOBULIN (HUMAN) [Suspect]
     Indication: PLASMAPHERESIS
     Route: 042
     Dates: start: 20120216
  12. IMMUNE GLOBULIN (HUMAN) [Suspect]
     Indication: PLASMAPHERESIS
     Route: 042
     Dates: start: 20120218

REACTIONS (5)
  - THROMBOSIS [None]
  - PANCYTOPENIA [None]
  - OFF LABEL USE [None]
  - TRANSPLANT REJECTION [None]
  - HYPOFIBRINOGENAEMIA [None]
